FAERS Safety Report 9776244 (Version 3)
Quarter: 2014Q1

REPORT INFORMATION
  Report Type: Spontaneous
  Country: JP (occurrence: JP)
  Receive Date: 20131220
  Receipt Date: 20140220
  Transmission Date: 20141002
  Serious: Yes (Hospitalization, Other)
  Sender: FDA-Public Use
  Company Number: JP-PFIZER INC-2013363176

PATIENT
  Age: 55 Year
  Sex: Female
  Weight: 43.3 kg

DRUGS (1)
  1. METHYLPREDNISOLONE SODIUM SUCCINATE [Suspect]
     Indication: ENDOCRINE OPHTHALMOPATHY
     Dosage: 1000 MG, DAILY, DAYS 1-3 AND 8-10

REACTIONS (2)
  - Herpes simplex hepatitis [Unknown]
  - Hepatitis B DNA increased [Unknown]
